FAERS Safety Report 13447956 (Version 1)
Quarter: 2017Q2

REPORT INFORMATION
  Report Type: Spontaneous
  Country: US (occurrence: US)
  Receive Date: 20170417
  Receipt Date: 20170417
  Transmission Date: 20170830
  Serious: Yes (Other)
  Sender: FDA-Public Use
  Company Number: None

PATIENT
  Age: 72 Year
  Sex: Male
  Weight: 79.38 kg

DRUGS (8)
  1. CARVEDILOL. [Concomitant]
     Active Substance: CARVEDILOL
  2. HAIR VITAMIN [Concomitant]
  3. FENOFIBRATE. [Suspect]
     Active Substance: FENOFIBRATE
     Indication: BLOOD CHOLESTEROL
     Dosage: 1 DAILY AM BY MOUTH
     Route: 048
     Dates: start: 20160531, end: 20160603
  4. FLOMAX [Concomitant]
     Active Substance: TAMSULOSIN HYDROCHLORIDE
  5. QUINAPRIL. [Concomitant]
     Active Substance: QUINAPRIL
  6. VITAMIN D3 [Concomitant]
     Active Substance: CHOLECALCIFEROL
  7. FINASTERIDE. [Concomitant]
     Active Substance: FINASTERIDE
  8. PRESERVISION EYE VITAMINS [Concomitant]

REACTIONS (7)
  - Pruritus [None]
  - Dermatitis contact [None]
  - Dysuria [None]
  - Alopecia [None]
  - Urine odour abnormal [None]
  - Chromaturia [None]
  - Urinary tract infection [None]
